FAERS Safety Report 8989838 (Version 2)
Quarter: 2013Q1

REPORT INFORMATION
  Report Type: Spontaneous
  Country: BR (occurrence: BR)
  Receive Date: 20121228
  Receipt Date: 20130114
  Transmission Date: 20140127
  Serious: Yes (Other)
  Sender: FDA-Public Use
  Company Number: BR-AMGEN-BRASP2012019013

PATIENT
  Age: 67 Year
  Sex: Male
  Weight: 67 kg

DRUGS (9)
  1. ENBREL [Suspect]
     Indication: RHEUMATOID ARTHRITIS
     Dosage: 50 MG, ONCE WEEKLY
     Route: 058
     Dates: start: 201010, end: 201107
  2. ENBREL [Suspect]
     Dosage: 50 MG, QWK
     Route: 058
     Dates: start: 201107
  3. OMEPRAZOLE [Concomitant]
     Dosage: 20 MG, UNK
  4. METFORMIN [Concomitant]
     Dosage: 850 MG, 3X/DAY
  5. FLAMACORTEN [Concomitant]
     Dosage: 5 MG, UNK
  6. PREDNISONE [Concomitant]
     Dosage: 5 MG, UNK
  7. ARAVA [Concomitant]
     Dosage: 20 MG, UNK
  8. NPH INSULIN [Concomitant]
     Indication: DIABETES MELLITUS
     Dosage: UNSPECIFIED DOSE TWICE A DAY
  9. FERROUS SULFATE [Concomitant]
     Dosage: 250 MG, UNK

REACTIONS (15)
  - Arthralgia [Not Recovered/Not Resolved]
  - Infarction [Unknown]
  - Hypoaesthesia [Not Recovered/Not Resolved]
  - Prostatomegaly [Unknown]
  - Pain in extremity [Unknown]
  - Formication [Not Recovered/Not Resolved]
  - Nodule [Not Recovered/Not Resolved]
  - Pain [Unknown]
  - Local swelling [Unknown]
  - Oral disorder [Unknown]
  - Limb discomfort [Unknown]
  - Neoplasm [Unknown]
  - Arthralgia [Unknown]
  - Drug ineffective [Unknown]
  - Injection site pain [Unknown]
